FAERS Safety Report 15689139 (Version 2)
Quarter: 2018Q4

REPORT INFORMATION
  Report Type: Spontaneous
  Country: US (occurrence: US)
  Receive Date: 20181205
  Receipt Date: 20181227
  Transmission Date: 20190205
  Serious: Yes (Hospitalization)
  Sender: FDA-Public Use
  Company Number: US-KYOWAKIRIN-2018BKK010490

PATIENT

DRUGS (1)
  1. POTELIGEO [Suspect]
     Active Substance: MOGAMULIZUMAB-KPKC
     Indication: MYCOSIS FUNGOIDES
     Dosage: 88 MG, DAYS 1, 8, 15 AND 22 OF THE FIRST 28-DAY CYCLE AND ON DAYS 1 AND 15 OF EACH SUBSEQUENT CYCLE
     Route: 042
     Dates: start: 20181108, end: 20181108

REACTIONS (3)
  - Skin weeping [Recovering/Resolving]
  - Pain [Unknown]
  - Erythema [Unknown]

NARRATIVE: CASE EVENT DATE: 201811
